FAERS Safety Report 5989441-9 (Version None)
Quarter: 2008Q4

REPORT INFORMATION
  Report Type: 
  Country: None (occurrence: None)
  Receive Date: 20081205
  Receipt Date: 20081121
  Transmission Date: 20090506
  Serious: Yes (Hospitalization)
  Sender: FDA-Public Use
  Company Number: KV200800477

PATIENT
  Age: 55 Year
  Sex: Female
  Weight: 90.7 kg

DRUGS (12)
  1. ISOSORBIDE DINITRATE [Suspect]
     Indication: ANGINA PECTORIS
     Dosage: 60 MG, QD, ORAL
     Route: 048
     Dates: start: 20080301
  2. METFORMIN HCL [Concomitant]
  3. VICODIN [Concomitant]
  4. POTASSIUM (POTASSIUM) [Concomitant]
  5. COREG [Concomitant]
  6. ZOCOR [Concomitant]
  7. XANAX [Concomitant]
  8. HYDROCHLOROTHIAZIDE [Concomitant]
  9. LISINOPRIL [Concomitant]
  10. ASPIRIN [Concomitant]
  11. FUROSEMIDE [Concomitant]
  12. NITROGLYCERIN [Concomitant]

REACTIONS (3)
  - ABDOMINAL PAIN UPPER [None]
  - DIARRHOEA [None]
  - NAUSEA [None]
